FAERS Safety Report 23371636 (Version 1)
Quarter: 2024Q1

REPORT INFORMATION
  Report Type: Spontaneous
  Country: US (occurrence: US)
  Receive Date: 20240105
  Receipt Date: 20240105
  Transmission Date: 20240410
  Serious: No
  Sender: FDA-Public Use
  Company Number: CID000000000042779

PATIENT
  Age: 39 Year

DRUGS (1)
  1. UZEDY [Suspect]
     Active Substance: RISPERIDONE
     Indication: Schizoaffective disorder depressive type
     Dosage: 75/0.21 MG/ML
     Route: 058

REACTIONS (2)
  - Fear of injection [Unknown]
  - Fatigue [Unknown]
